FAERS Safety Report 7598495-8 (Version None)
Quarter: 2011Q3

REPORT INFORMATION
  Report Type: 
  Country: None (occurrence: None)
  Receive Date: 20110708
  Receipt Date: 20110628
  Transmission Date: 20111222
  Serious: Yes (Hospitalization, Other)
  Sender: FDA-Public Use
  Company Number: IT-ELI_LILLY_AND_COMPANY-IT201106004635

PATIENT
  Sex: Female

DRUGS (7)
  1. OMEPRAZOLE [Concomitant]
     Dosage: 20 MG, UNKNOWN
     Route: 065
     Dates: start: 20110101, end: 20110209
  2. XANAX [Concomitant]
     Dosage: UNK
     Dates: start: 20110101, end: 20110209
  3. FOLIC ACID [Concomitant]
     Dosage: 400 UG, QD
     Route: 065
     Dates: start: 20110101, end: 20110209
  4. ALIMTA [Suspect]
     Indication: LUNG ADENOCARCINOMA
     Dosage: 600 MG, PER CYCLE
     Route: 042
     Dates: start: 20110209
  5. CISPLATIN [Concomitant]
     Dosage: 100 MG, UNKNOWN
     Route: 042
     Dates: start: 20110209
  6. ATORVASTATIN CALCIUM [Concomitant]
     Dosage: 10 MG, UNKNOWN
     Dates: start: 20110101, end: 20110209
  7. ALPRAZOLAM [Concomitant]
     Dosage: 0.25 MG, UNKNOWN
     Route: 065
     Dates: start: 20110101, end: 20110209

REACTIONS (1)
  - INTESTINAL OBSTRUCTION [None]
